FAERS Safety Report 6429438-8 (Version None)
Quarter: 2009Q4

REPORT INFORMATION
  Report Type: 
  Country: None (occurrence: None)
  Receive Date: 20091105
  Receipt Date: 20090811
  Transmission Date: 20100525
  Serious: No
  Sender: FDA-Public Use
  Company Number: US-ABBOTT-09P-163-0579454-00

PATIENT
  Sex: Male
  Weight: 90.8 kg

DRUGS (15)
  1. KALETRA [Suspect]
     Indication: HIV INFECTION
     Dosage: 200/50MG 2 IN 1 DAY
     Route: 048
     Dates: start: 20080401
  2. Z-PAK [Suspect]
     Indication: SINUSITIS
  3. TRUVADA [Concomitant]
     Indication: HIV INFECTION
     Route: 048
  4. LEXAPRO [Concomitant]
     Indication: DEPRESSION
     Route: 048
  5. LEXAPRO [Concomitant]
     Indication: ANXIETY
  6. SINGULAIR [Concomitant]
     Indication: HYPERSENSITIVITY
     Route: 048
  7. ASTELIN [Concomitant]
     Indication: HYPERSENSITIVITY
     Dosage: EACH NOSTRIL
     Route: 045
  8. TEMAZEPAM [Concomitant]
     Indication: INSOMNIA
     Route: 048
  9. ADVIL [Concomitant]
     Indication: PAIN
     Route: 048
  10. FIBER CAP [Concomitant]
     Indication: IRRITABLE BOWEL SYNDROME
     Route: 048
  11. IMODIUM [Concomitant]
     Indication: DIARRHOEA
     Route: 048
  12. JARRO-DOPHILUS [Concomitant]
     Indication: SUPPLEMENTATION THERAPY
     Route: 048
  13. PROBIOTICS [Concomitant]
     Indication: DRUG USE FOR UNKNOWN INDICATION
  14. VALTREX [Concomitant]
     Indication: HERPES SIMPLEX
  15. MULTI-VITAMINS [Concomitant]
     Indication: DRUG USE FOR UNKNOWN INDICATION

REACTIONS (9)
  - BLOOD GLUCOSE INCREASED [None]
  - DIARRHOEA [None]
  - DYSPHAGIA [None]
  - HAEMORRHOIDS [None]
  - HIGH DENSITY LIPOPROTEIN DECREASED [None]
  - INSOMNIA [None]
  - RECTAL HAEMORRHAGE [None]
  - SINUSITIS [None]
  - VOMITING [None]
